FAERS Safety Report 15892518 (Version 1)
Quarter: 2019Q1

REPORT INFORMATION
  Report Type: Report from Study
  Country: US (occurrence: US)
  Receive Date: 20190130
  Receipt Date: 20190130
  Transmission Date: 20190417
  Serious: No
  Sender: FDA-Public Use
  Company Number: US-EXELIXIS-CABO-18014739

PATIENT
  Sex: Female

DRUGS (7)
  1. COMETRIQ [Suspect]
     Active Substance: CABOZANTINIB S-MALATE
     Dosage: 140 MG, QD
     Route: 048
     Dates: start: 20180628
  2. NORCO [Concomitant]
     Active Substance: ACETAMINOPHEN\HYDROCODONE BITARTRATE
  3. FENTANYL. [Concomitant]
     Active Substance: FENTANYL
  4. COMETRIQ [Suspect]
     Active Substance: CABOZANTINIB S-MALATE
     Indication: THYROID CANCER
     Dosage: 140 MG, QD
     Route: 048
     Dates: start: 20160603, end: 2017
  5. COMETRIQ [Suspect]
     Active Substance: CABOZANTINIB S-MALATE
     Dosage: 140 MG, UNK, 3 TIMES/WEEK
  6. KEFLEX [Concomitant]
     Active Substance: CEPHALEXIN
  7. LEVOTHYROXINE. [Concomitant]
     Active Substance: LEVOTHYROXINE

REACTIONS (3)
  - Diarrhoea [Unknown]
  - Blister [Unknown]
  - Metastases to lymph nodes [Unknown]
